FAERS Safety Report 9052621 (Version 1)
Quarter: 2013Q1

REPORT INFORMATION
  Report Type: Spontaneous
  Country: JP (occurrence: JP)
  Receive Date: 20130207
  Receipt Date: 20130207
  Transmission Date: 20140127
  Serious: Yes (Other)
  Sender: FDA-Public Use
  Company Number: JP-ASTELLAS-2013JP001201

PATIENT
  Age: 72 Year
  Sex: Female

DRUGS (3)
  1. PROGRAF [Suspect]
     Indication: RHEUMATOID ARTHRITIS
     Dosage: 2 MG, UNKNOWN/D
     Route: 048
  2. PREDNISOLONE [Concomitant]
     Dosage: 3 MG, UNKNOWN/D
     Route: 048
  3. BISPHOSPHONATES [Concomitant]
     Route: 048

REACTIONS (1)
  - Gingival recession [Unknown]
